FAERS Safety Report 9735145 (Version 1)
Quarter: 2013Q4

REPORT INFORMATION
  Report Type: Spontaneous
  Country: GB (occurrence: None)
  Receive Date: 20131204
  Receipt Date: 20131204
  Transmission Date: 20140711
  Serious: Yes (Other)
  Sender: FDA-Public Use
  Company Number: 2013P1021431

PATIENT
  Age: 49 Year
  Sex: Male

DRUGS (1)
  1. CEFTRIAXONE [Suspect]
     Indication: LEPTOSPIROSIS
     Route: 042

REACTIONS (6)
  - Vomiting [None]
  - Diarrhoea [None]
  - Myalgia [None]
  - Pleural effusion [None]
  - Lung consolidation [None]
  - Jarisch-Herxheimer reaction [None]
